APPROVED DRUG PRODUCT: METADATE ER
Active Ingredient: METHYLPHENIDATE HYDROCHLORIDE
Strength: 20MG
Dosage Form/Route: TABLET, EXTENDED RELEASE;ORAL
Application: A089601 | Product #001
Applicant: LANNETT CO INC
Approved: Jun 1, 1988 | RLD: No | RS: No | Type: DISCN